FAERS Safety Report 6258971-7 (Version None)
Quarter: 2009Q3

REPORT INFORMATION
  Report Type: 
  Country: None (occurrence: None)
  Receive Date: 20090707
  Receipt Date: 20090701
  Transmission Date: 20100115
  Serious: Yes (Other)
  Sender: FDA-Public Use
  Company Number: FR-GENENTECH-285993

PATIENT
  Age: 45 Year
  Sex: Male

DRUGS (4)
  1. AVASTIN [Suspect]
     Indication: COLORECTAL CANCER METASTATIC
     Dosage: UNK
  2. FLUOROURACIL [Concomitant]
     Indication: COLORECTAL CANCER METASTATIC
  3. FOLINIC ACID [Concomitant]
     Indication: COLORECTAL CANCER METASTATIC
  4. IRINOTECAN HCL [Concomitant]
     Indication: COLORECTAL CANCER METASTATIC

REACTIONS (1)
  - CHOLANGITIS [None]
